FAERS Safety Report 24639758 (Version 2)
Quarter: 2024Q4

REPORT INFORMATION
  Report Type: Report from Study
  Country: CA (occurrence: CA)
  Receive Date: 20241119
  Receipt Date: 20241211
  Transmission Date: 20250114
  Serious: Yes (Hospitalization, Other)
  Sender: ABBVIE
  Company Number: CA-ABBVIE-6001342

PATIENT
  Sex: Male

DRUGS (1)
  1. SKYRIZI [Suspect]
     Active Substance: RISANKIZUMAB-RZAA
     Indication: Crohn^s disease
     Route: 058
     Dates: start: 20230907

REACTIONS (12)
  - Hospitalisation [Recovered/Resolved]
  - Haematochezia [Not Recovered/Not Resolved]
  - Abdominal pain [Unknown]
  - Endoscopy gastrointestinal abnormal [Unknown]
  - Abdominal rigidity [Recovered/Resolved]
  - Partial seizures [Recovered/Resolved]
  - Arthralgia [Recovering/Resolving]
  - Raynaud^s phenomenon [Unknown]
  - Open globe injury [Unknown]
  - Frequent bowel movements [Unknown]
  - Hernia [Unknown]
  - Weight increased [Unknown]

NARRATIVE: CASE EVENT DATE: 20230101
